FAERS Safety Report 7940121-X (Version None)
Quarter: 2011Q4

REPORT INFORMATION
  Report Type: 
  Country: None (occurrence: None)
  Receive Date: 20111125
  Receipt Date: 20111114
  Transmission Date: 20120403
  Serious: Yes (Other)
  Sender: FDA-Public Use
  Company Number: US-ELI_LILLY_AND_COMPANY-US201111005602

PATIENT
  Sex: Female

DRUGS (1)
  1. FORTEO [Suspect]
     Route: 065

REACTIONS (1)
  - CHEMOTHERAPY [None]
